FAERS Safety Report 7423516-2 (Version None)
Quarter: 2011Q2

REPORT INFORMATION
  Report Type: 
  Country: None (occurrence: None)
  Receive Date: 20110413
  Receipt Date: 20110413
  Transmission Date: 20111010
  Serious: Yes (Hospitalization)
  Sender: FDA-Public Use
  Company Number: None

PATIENT
  Age: 63 Year
  Sex: Male
  Weight: 58.9676 kg

DRUGS (2)
  1. LISINOPRIL [Suspect]
     Indication: HYPERTENSION
     Dates: start: 20101202, end: 20110112
  2. GEMFIBROZIL [Suspect]
     Indication: HYPERLIPIDAEMIA
     Dates: start: 20101202, end: 20110112

REACTIONS (1)
  - ANGIOEDEMA [None]
